FAERS Safety Report 21338557 (Version 1)
Quarter: 2022Q3

REPORT INFORMATION
  Report Type: Spontaneous
  Country: AU (occurrence: AU)
  Receive Date: 20220915
  Receipt Date: 20220915
  Transmission Date: 20221027
  Serious: No
  Sender: FDA-Public Use
  Company Number: AU-PADAGIS-2022PAD00640

PATIENT

DRUGS (3)
  1. TRETINOIN [Suspect]
     Active Substance: TRETINOIN
     Indication: Product used for unknown indication
     Dosage: UNK
     Route: 065
  2. BOMEDEMSTAT [Concomitant]
     Active Substance: BOMEDEMSTAT
     Indication: Product used for unknown indication
     Dosage: DOSE WAS INCREASED TO  DOSE WAS INCREASED TO
     Route: 065
  3. BOMEDEMSTAT [Concomitant]
     Active Substance: BOMEDEMSTAT
     Dosage: DOSE WAS INCREASED TO 3 MG/KG
     Route: 065

REACTIONS (3)
  - Dry skin [Unknown]
  - Dry eye [Unknown]
  - Skin exfoliation [Unknown]
